FAERS Safety Report 11515610 (Version 2)
Quarter: 2015Q3

REPORT INFORMATION
  Report Type: Spontaneous
  Country: IT (occurrence: IT)
  Receive Date: 20150916
  Receipt Date: 20150921
  Transmission Date: 20151125
  Serious: Yes (Hospitalization)
  Sender: FDA-Public Use
  Company Number: PHHY2015IT109295

PATIENT
  Age: 95 Year
  Sex: Male

DRUGS (5)
  1. SIRIO [Suspect]
     Active Substance: CARBIDOPA\MELEVODOPA
     Indication: PARKINSON^S DISEASE
     Dosage: 1 DF, QD
     Route: 048
     Dates: start: 20041028, end: 20150728
  2. AMLODIPINE [Suspect]
     Active Substance: AMLODIPINE BESYLATE
     Indication: HYPERTENSION
     Dosage: 2.5 MG, QD
     Route: 048
     Dates: start: 20150703, end: 20150728
  3. HALCION [Concomitant]
     Active Substance: TRIAZOLAM
     Indication: INSOMNIA
     Dosage: 125 MG, UNK
     Route: 048
     Dates: start: 20150703, end: 20150728
  4. CITALOPRAM [Suspect]
     Active Substance: CITALOPRAM HYDROBROMIDE
     Indication: POST-TRAUMATIC STRESS DISORDER
     Dosage: 20 MG, QD
     Route: 048
     Dates: start: 20150703, end: 20150728
  5. TALOFEN [Concomitant]
     Active Substance: PROMAZINE HYDROCHLORIDE
     Indication: NEUROSIS
     Dosage: 20 DRP, UNK
     Route: 048
     Dates: end: 20150907

REACTIONS (3)
  - Off label use [Unknown]
  - Bradycardia [Recovered/Resolved]
  - Hypertensive crisis [Recovered/Resolved]

NARRATIVE: CASE EVENT DATE: 20150728
